FAERS Safety Report 4563938-0 (Version None)
Quarter: 2005Q1

REPORT INFORMATION
  Report Type: 
  Country: None (occurrence: None)
  Receive Date: 20050128
  Receipt Date: 20050120
  Transmission Date: 20050727
  Serious: Yes (Hospitalization)
  Sender: FDA-Public Use
  Company Number: DE-JNJFOC-20050104806

PATIENT
  Sex: Male

DRUGS (7)
  1. DURAGESIC [Suspect]
     Indication: PAIN MANAGEMENT
     Route: 062
     Dates: start: 20040906
  2. APONAL [Concomitant]
     Route: 065
  3. OMEPRAZOLE [Concomitant]
     Route: 065
  4. METOPROLOL SUCCINATE [Concomitant]
     Route: 065
  5. INSULIN [Concomitant]
     Route: 065
  6. ISOPHANE [Concomitant]
     Route: 065
  7. CHEMOTHERAPY [Concomitant]
     Route: 065

REACTIONS (4)
  - ASTHENIA [None]
  - DYSPNOEA [None]
  - GASTROENTERITIS SALMONELLA [None]
  - SALMONELLOSIS [None]
